FAERS Safety Report 17610480 (Version 1)
Quarter: 2020Q2

REPORT INFORMATION
  Report Type: Spontaneous
  Country: US (occurrence: US)
  Receive Date: 20200401
  Receipt Date: 20200401
  Transmission Date: 20200713
  Serious: No
  Sender: FDA-Public Use
  Company Number: None

PATIENT

DRUGS (3)
  1. DIGOXIN 125 MCG [Suspect]
     Active Substance: DIGOXIN
  2. DOXYCYCLINE HYCLATE. [Suspect]
     Active Substance: DOXYCYCLINE HYCLATE
  3. DICYCLOMINE HYDOCHLORIDE [Suspect]
     Active Substance: DICYCLOMINE HYDROCHLORIDE

REACTIONS (1)
  - Product appearance confusion [None]

NARRATIVE: CASE EVENT DATE: 20200326
